FAERS Safety Report 6771621-6 (Version None)
Quarter: 2010Q2

REPORT INFORMATION
  Report Type: 
  Country: None (occurrence: None)
  Receive Date: 20100616
  Receipt Date: 20100604
  Transmission Date: 20101027
  Serious: Yes (Hospitalization)
  Sender: FDA-Public Use
  Company Number: PHHY2010US38340

PATIENT
  Sex: Female

DRUGS (7)
  1. RITALIN [Suspect]
     Dosage: UNK,UNK
  2. TYLENOL [Suspect]
     Indication: MUSCLE SPASMS
     Dosage: UNK,UNK
  3. PLAVIX [Concomitant]
     Dosage: UNK,UNK
  4. METOPROLOL [Concomitant]
     Dosage: UNK,UNK
  5. NORVASC [Concomitant]
     Dosage: UNK,UNK
  6. SYNTHROID [Concomitant]
     Dosage: UNK,UNK
  7. DYAZIDE [Concomitant]
     Dosage: UNK,UNK

REACTIONS (6)
  - ASTHENIA [None]
  - DECREASED ACTIVITY [None]
  - DEPRESSED MOOD [None]
  - FALL [None]
  - INSOMNIA [None]
  - THINKING ABNORMAL [None]
